FAERS Safety Report 9136005 (Version 2)
Quarter: 2013Q3

REPORT INFORMATION
  Report Type: Spontaneous
  Country: US (occurrence: US)
  Receive Date: 20130304
  Receipt Date: 20130909
  Transmission Date: 20140515
  Serious: Yes (Other)
  Sender: FDA-Public Use
  Company Number: US-PFIZER INC-2013075002

PATIENT
  Age: 61 Year
  Sex: Male
  Weight: 151 kg

DRUGS (9)
  1. LYRICA [Suspect]
     Indication: DIABETIC NEUROPATHY
     Dosage: 150 MG, 3X/DAY
     Route: 048
     Dates: end: 201308
  2. CLEOCIN [Suspect]
     Indication: TOOTH INFECTION
     Dosage: 300MG TWO CAPSULES, 2X/DAY
     Dates: start: 201302, end: 201302
  3. CIPRO [Suspect]
     Indication: TOOTH INFECTION
     Dosage: 500 MG, 2X/DAY
     Dates: start: 201302, end: 201302
  4. ATORVASTATIN CALCIUM [Concomitant]
     Indication: BLOOD CHOLESTEROL INCREASED
     Dosage: 40 MG, 1X/DAY
  5. FUROSEMIDE [Concomitant]
     Indication: OEDEMA
     Dosage: 40 MG, 2X/DAY
  6. HYDROCHLOROTHIAZIDE [Concomitant]
     Indication: HYPERTENSION
     Dosage: 12.5 MG, 1X/DAY
  7. LISINOPRIL [Concomitant]
     Indication: HYPERTENSION
     Dosage: 20MG DAILY
  8. METOPROLOL [Concomitant]
     Indication: CARDIAC FAILURE CONGESTIVE
     Dosage: 25 MG, 2X/DAY
  9. METFORMIN [Concomitant]
     Indication: DIABETES MELLITUS
     Dosage: 5 MG, 2X/DAY

REACTIONS (3)
  - Tooth infection [Unknown]
  - Diarrhoea [Recovered/Resolved]
  - Medication residue present [Recovered/Resolved]
